FAERS Safety Report 9338116 (Version 2)
Quarter: 2013Q2

REPORT INFORMATION
  Report Type: Spontaneous
  Country: IN (occurrence: IN)
  Receive Date: 20130610
  Receipt Date: 20130614
  Transmission Date: 20140414
  Serious: Yes (Death, Other)
  Sender: FDA-Public Use
  Company Number: IN-009507513-1306IND003163

PATIENT
  Age: 66 Year
  Sex: Female

DRUGS (1)
  1. JANUMET [Suspect]
     Dosage: UNK, BID
     Route: 048

REACTIONS (1)
  - Myocardial infarction [Fatal]
